FAERS Safety Report 4652952-2 (Version None)
Quarter: 2005Q2

REPORT INFORMATION
  Report Type: 
  Country: None (occurrence: None)
  Receive Date: 20050503
  Receipt Date: 20050418
  Transmission Date: 20051028
  Serious: Yes (Hospitalization)
  Sender: FDA-Public Use
  Company Number: 2005BI001366

PATIENT
  Age: 51 Year
  Sex: Female
  Weight: 82.5547 kg

DRUGS (2)
  1. AVONEX [Suspect]
     Indication: MULTIPLE SCLEROSIS
     Dosage: 30UG;QW;IM
     Route: 030
     Dates: start: 19980501
  2. AVONEX [Suspect]
     Indication: MULTIPLE SCLEROSIS
     Dosage: 22.5 UG;QW;IM
     Route: 030

REACTIONS (14)
  - ARRHYTHMIA [None]
  - COLOSTOMY [None]
  - DEPRESSION [None]
  - HERPES SIMPLEX [None]
  - HOT FLUSH [None]
  - HYPERHIDROSIS [None]
  - HYPERSENSITIVITY [None]
  - HYPERTENSION [None]
  - MENSTRUATION IRREGULAR [None]
  - NASOPHARYNGITIS [None]
  - OTITIS MEDIA [None]
  - PITTING OEDEMA [None]
  - SINUSITIS [None]
  - WEIGHT DECREASED [None]
